FAERS Safety Report 5230808-4 (Version None)
Quarter: 2007Q1

REPORT INFORMATION
  Report Type: 
  Country: None (occurrence: None)
  Receive Date: 20070206
  Receipt Date: 20070124
  Transmission Date: 20070707
  Serious: Yes (Other)
  Sender: FDA-Public Use
  Company Number: JP-PFIZER INC-2007004721

PATIENT
  Age: 6 Year
  Sex: Male

DRUGS (6)
  1. ZITHROMAC [Suspect]
     Indication: PHARYNGITIS
     Dosage: DAILY DOSE:180MG
     Route: 048
     Dates: start: 20070115, end: 20070115
  2. ANHIBA [Concomitant]
     Route: 054
     Dates: start: 20070115, end: 20070115
  3. CODEINE PHOSPHATE [Concomitant]
     Route: 048
     Dates: start: 20070115
  4. METHY F [Concomitant]
     Route: 048
     Dates: start: 20070115
  5. NEORESTAMIN [Concomitant]
     Route: 048
     Dates: start: 20070115
  6. SCOPOLIA EXTRACT [Concomitant]
     Route: 048
     Dates: start: 20070115

REACTIONS (1)
  - AGITATION [None]
